FAERS Safety Report 9736349 (Version 1)
Quarter: 2013Q4

REPORT INFORMATION
  Report Type: Spontaneous
  Country: FR (occurrence: FR)
  Receive Date: 20131206
  Receipt Date: 20131206
  Transmission Date: 20140711
  Serious: Yes (Hospitalization)
  Sender: FDA-Public Use
  Company Number: FR-PFIZER INC-2013345576

PATIENT
  Age: 57 Year
  Sex: Male

DRUGS (4)
  1. ZOLOFT [Suspect]
     Dosage: 50 MG, 3X/DAY IN THE MORNING
     Route: 048
  2. DOGMATIL [Suspect]
     Dosage: 200 MG, 3X/DAY, 1 IN THE MORNING AND 2 IN THE EVENING
     Route: 048
     Dates: start: 2010
  3. SERESTA [Suspect]
     Dosage: 10 MG, 1X/DAY IN THE EVENING
     Route: 048
  4. THERALENE [Suspect]
     Dosage: 5 MG, 2X/DAY (EVENING)
     Route: 048

REACTIONS (4)
  - Pulmonary embolism [Recovered/Resolved]
  - Arthralgia [Unknown]
  - Hepatic steatosis [Unknown]
  - Chest pain [Unknown]
